FAERS Safety Report 22750451 (Version 5)
Quarter: 2024Q3

REPORT INFORMATION
  Report Type: Spontaneous
  Country: PK (occurrence: PK)
  Receive Date: 20230726
  Receipt Date: 20240829
  Transmission Date: 20241017
  Serious: Yes (Other)
  Sender: AMGEN
  Company Number: PK-PFIZER INC-PV202300126472

PATIENT
  Age: 61 Year
  Sex: Male

DRUGS (11)
  1. ENBREL [Suspect]
     Active Substance: BENZYL ALCOHOL\ETANERCEPT
     Indication: Psoriatic arthropathy
     Dosage: UNK
     Route: 065
     Dates: start: 2010, end: 2022
  2. ENBREL [Suspect]
     Active Substance: BENZYL ALCOHOL\ETANERCEPT
     Dosage: 50 MG, WEEKLY
     Route: 058
     Dates: start: 202307
  3. ENBREL [Suspect]
     Active Substance: BENZYL ALCOHOL\ETANERCEPT
     Dosage: 50 MG, MONTHLY
     Route: 058
  4. DICLOFENAC SODIUM [Concomitant]
     Active Substance: DICLOFENAC\DICLOFENAC SODIUM
     Dosage: UNK, 3X/DAY
     Route: 061
  5. HIGH C [Concomitant]
     Dosage: AFTER MEAL
     Route: 065
  6. Sunny d [Concomitant]
     Dosage: ONCE IN TWO MONTHS
  7. NUBEROL [Concomitant]
     Dosage: IN EVENING AFTER MEAL
  8. PREVNAR 13 [Concomitant]
     Active Substance: STREPTOCOCCUS PNEUMONIAE TYPE 1 CAPSULAR POLYSACCHARIDE DIPHTHERIA CRM197 PROTEIN CONJUGATE ANTIGEN\
     Indication: Immunisation
     Dosage: ONCE EVERY 5 YEARS
     Route: 030
  9. Tonoflex [Concomitant]
     Dosage: IN EVENING AFTER MEAL AS PER NEED
  10. CHEWCAL [Concomitant]
     Dosage: 1 DF, 1X/DAY
  11. ALFACALCIDOL [Concomitant]
     Active Substance: ALFACALCIDOL
     Dosage: 1 DF, 1X/DAY

REACTIONS (11)
  - Diabetes mellitus inadequate control [Unknown]
  - Renal failure [Recovered/Resolved]
  - Body mass index increased [Unknown]
  - Blood pressure inadequately controlled [Unknown]
  - Hypophagia [Unknown]
  - Blood uric acid increased [Unknown]
  - Osteoporosis [Unknown]
  - Intentional product misuse [Unknown]
  - Red blood cell sedimentation rate increased [Unknown]
  - Off label use [Unknown]
  - Upper respiratory tract infection [Recovered/Resolved]

NARRATIVE: CASE EVENT DATE: 20230703
